FAERS Safety Report 8319463-4 (Version None)
Quarter: 2012Q2

REPORT INFORMATION
  Report Type: 
  Country: None (occurrence: None)
  Receive Date: 20120426
  Receipt Date: 20120426
  Transmission Date: 20120825
  Serious: Yes (Hospitalization)
  Sender: FDA-Public Use
  Company Number: None

PATIENT
  Age: 28 Year
  Sex: Female

DRUGS (12)
  1. HECTOROL [Suspect]
     Dosage: 1.0 MCG 3X QW 2.0 MCG 3X QW
     Dates: start: 20111201, end: 20111201
  2. HECTOROL [Suspect]
     Dosage: 1.0 MCG 3X QW 2.0 MCG 3X QW
     Dates: start: 20111126, end: 20111201
  3. APAP TAB [Concomitant]
  4. VENOFER/IRON SUCRO [Concomitant]
  5. LABETALOL HCL [Concomitant]
  6. BENADRYL [Concomitant]
  7. ALPRAZOLAM [Concomitant]
  8. PANCREAZE (LIPASE-PROTEASE-AMYLASE) [Concomitant]
  9. EPOGEN [Concomitant]
  10. CLONIDINE [Concomitant]
  11. CALCIUM ACETATE [Concomitant]
  12. CINACALCET HYDROCHLORIDE [Concomitant]

REACTIONS (3)
  - LIPASE INCREASED [None]
  - AMYLASE INCREASED [None]
  - BLOOD ALBUMIN DECREASED [None]
